FAERS Safety Report 20142425 (Version 2)
Quarter: 2021Q4

REPORT INFORMATION
  Report Type: Spontaneous
  Country: US (occurrence: US)
  Receive Date: 20211202
  Receipt Date: 20211216
  Transmission Date: 20220303
  Serious: Yes (Other)
  Sender: FDA-Public Use
  Company Number: US-TEVA-2021-US-1982295

PATIENT
  Age: 52 Year
  Sex: Male

DRUGS (1)
  1. DIDANOSINE [Suspect]
     Active Substance: DIDANOSINE
     Indication: Product used for unknown indication
     Route: 065

REACTIONS (1)
  - Retinopathy [Recovering/Resolving]
